FAERS Safety Report 12385601 (Version 2)
Quarter: 2016Q3

REPORT INFORMATION
  Report Type: Spontaneous
  Country: US (occurrence: US)
  Receive Date: 20160519
  Receipt Date: 20160707
  Transmission Date: 20161109
  Serious: No
  Sender: FDA-Public Use
  Company Number: US-GLAXOSMITHKLINE-US2016GSK062941

PATIENT
  Sex: Female
  Weight: 99.32 kg

DRUGS (1)
  1. LAMICTAL [Suspect]
     Active Substance: LAMOTRIGINE
     Indication: AFFECTIVE DISORDER
     Dosage: UNK, U
     Route: 048
     Dates: start: 20151028, end: 20151118

REACTIONS (3)
  - Drug hypersensitivity [Recovered/Resolved]
  - Autophobia [Unknown]
  - Anger [Unknown]
